FAERS Safety Report 4295752-8 (Version None)
Quarter: 2004Q1

REPORT INFORMATION
  Report Type: 
  Country: None (occurrence: None)
  Receive Date: 20040216
  Receipt Date: 20031028
  Transmission Date: 20041129
  Serious: No
  Sender: FDA-Public Use
  Company Number: US-GLAXOSMITHKLINE-A0431915A

PATIENT
  Age: 68 Year
  Sex: Male
  Weight: 70.5 kg

DRUGS (3)
  1. LAMICTAL [Suspect]
     Route: 048
     Dates: start: 20030620
  2. CYTOMEL [Concomitant]
  3. LEXAPRO [Concomitant]
     Indication: DEPRESSION
     Dosage: 10MG PER DAY
     Route: 048
     Dates: start: 20030724

REACTIONS (2)
  - ASTHENIA [None]
  - CONSTIPATION [None]
